FAERS Safety Report 8785180 (Version 3)
Quarter: 2013Q1

REPORT INFORMATION
  Report Type: Spontaneous
  Country: MX (occurrence: None)
  Receive Date: 20120831
  Receipt Date: 20121130
  Transmission Date: 20140127
  Serious: Yes (Hospitalization)
  Sender: FDA-Public Use
  Company Number: ENTC2012-0386

PATIENT
  Age: 85 Year
  Sex: Male

DRUGS (8)
  1. STALEVO (LEVODOPA, CARBIDOPA, ENTACAPONE) [Suspect]
     Indication: PARKINSON^S DISEASE
     Route: 048
     Dates: start: 20120716
  2. TRAYENTA [Concomitant]
  3. GLUCOCOTAT [Concomitant]
  4. LINAGLIPTIN [Concomitant]
  5. NIFEDIPINE [Concomitant]
  6. PRAVASTATIN [Concomitant]
  7. METFORMIN [Concomitant]
  8. DIGENOR (DIMETICONE W/METOCLOPRAMIDE HYDROCHLORIDE) [Concomitant]

REACTIONS (12)
  - Syncope [None]
  - Diarrhoea [None]
  - Inflammation [None]
  - Fluid retention [None]
  - Abdominal pain upper [None]
  - Pyuria [None]
  - Feeling abnormal [None]
  - Blood glucose increased [None]
  - Dysuria [None]
  - Vision blurred [None]
  - Prostatic disorder [None]
  - Depressed level of consciousness [None]
